FAERS Safety Report 4432153-3 (Version None)
Quarter: 2004Q3

REPORT INFORMATION
  Report Type: 
  Country: None (occurrence: None)
  Receive Date: 20040820
  Receipt Date: 20040812
  Transmission Date: 20050211
  Serious: Yes (Other)
  Sender: FDA-Public Use
  Company Number: 2004JP001419

PATIENT
  Age: 51 Year
  Sex: Female
  Weight: 42 kg

DRUGS (8)
  1. PROGRAF [Suspect]
     Indication: BONE MARROW TRANSPLANT
     Dosage: 2.00 MG , BID, ORAL : INTRAVENOUS : 1.00 MG, BID, ORAL : 1.50 MG, BID, ORAL
     Route: 048
     Dates: start: 20040526, end: 20040623
  2. PROGRAF [Suspect]
     Indication: BONE MARROW TRANSPLANT
     Dosage: 2.00 MG , BID, ORAL : INTRAVENOUS : 1.00 MG, BID, ORAL : 1.50 MG, BID, ORAL
     Route: 048
     Dates: start: 20040624, end: 20040629
  3. PROGRAF [Suspect]
     Indication: BONE MARROW TRANSPLANT
     Dosage: 2.00 MG , BID, ORAL : INTRAVENOUS : 1.00 MG, BID, ORAL : 1.50 MG, BID, ORAL
     Route: 048
     Dates: start: 20040630, end: 20040630
  4. PROGRAF [Suspect]
     Indication: BONE MARROW TRANSPLANT
     Dosage: 2.00 MG , BID, ORAL : INTRAVENOUS : 1.00 MG, BID, ORAL : 1.50 MG, BID, ORAL
     Route: 048
     Dates: start: 20040701
  5. DIFLUCAN [Concomitant]
  6. ZOVIRAX [Concomitant]
  7. URSO [Concomitant]
  8. SOL-MELCORT (METHYLPREDNISOLONE SODIUM SUCCINATE) [Concomitant]

REACTIONS (5)
  - DEPRESSED LEVEL OF CONSCIOUSNESS [None]
  - DIZZINESS [None]
  - FALL [None]
  - HAND FRACTURE [None]
  - HYPONATRAEMIA [None]
